FAERS Safety Report 7893323-5 (Version None)
Quarter: 2011Q4

REPORT INFORMATION
  Report Type: 
  Country: None (occurrence: None)
  Receive Date: 20111104
  Receipt Date: 20111031
  Transmission Date: 20120403
  Serious: Yes (Life-Threatening, Hospitalization)
  Sender: FDA-Public Use
  Company Number: DE-B.I. PHARMACEUTICALS,INC./RIDGEFIELD-2011-DE-06183DE

PATIENT
  Sex: Male
  Weight: 85 kg

DRUGS (4)
  1. CARVEDILOL [Concomitant]
     Dosage: 12.5 MG
     Dates: start: 20110801
  2. AMLODIPINE [Concomitant]
     Dosage: 5 MG
     Dates: start: 20110530
  3. PRADAXA [Suspect]
     Indication: THROMBOSIS
     Dosage: 220 MG
     Dates: start: 20111001, end: 20111025
  4. RAMI COMP. [Concomitant]
     Dosage: 5/25MG
     Dates: start: 20091020

REACTIONS (1)
  - RENAL IMPAIRMENT [None]
